FAERS Safety Report 18833222 (Version 1)
Quarter: 2021Q1

REPORT INFORMATION
  Report Type: Spontaneous
  Country: US (occurrence: US)
  Receive Date: 20210203
  Receipt Date: 20210203
  Transmission Date: 20210419
  Serious: No
  Sender: FDA-Public Use
  Company Number: US-ALLERGAN-2001307US

PATIENT
  Age: 37 Year
  Sex: Female

DRUGS (14)
  1. BOTOX [Suspect]
     Active Substance: ONABOTULINUMTOXINA
     Dosage: UNK, SINGLE
     Route: 065
     Dates: start: 20200107, end: 20200107
  2. SEROQUEL [Concomitant]
     Active Substance: QUETIAPINE FUMARATE
  3. NIFEDIPINE. [Concomitant]
     Active Substance: NIFEDIPINE
  4. TYLENOL [Concomitant]
     Active Substance: ACETAMINOPHEN
  5. MAGNESIUM [Concomitant]
     Active Substance: MAGNESIUM
  6. FIORICET [Concomitant]
     Active Substance: ACETAMINOPHEN\BUTALBITAL\CAFFEINE
  7. FOLIC ACID. [Concomitant]
     Active Substance: FOLIC ACID
  8. PRENATAL VITAMINS [Concomitant]
     Active Substance: VITAMINS
  9. GLYCOLAX [Concomitant]
     Active Substance: POLYETHYLENE GLYCOL 3350
  10. PROTONIX [Concomitant]
     Active Substance: PANTOPRAZOLE SODIUM
  11. ZOFRAN [Concomitant]
     Active Substance: ONDANSETRON HYDROCHLORIDE
  12. BOTOX [Suspect]
     Active Substance: ONABOTULINUMTOXINA
     Indication: MIGRAINE
     Dosage: 155 UNITS, SINGLE
     Dates: start: 20191024, end: 20191024
  13. LAMICTAL [Concomitant]
     Active Substance: LAMOTRIGINE
  14. HYDROXYZINE [Concomitant]
     Active Substance: HYDROXYZINE HYDROCHLORIDE

REACTIONS (1)
  - Pregnancy [Unknown]
